FAERS Safety Report 8311555-9 (Version None)
Quarter: 2012Q2

REPORT INFORMATION
  Report Type: 
  Country: None (occurrence: None)
  Receive Date: 20120425
  Receipt Date: 20120417
  Transmission Date: 20120825
  Serious: Yes (Other)
  Sender: FDA-Public Use
  Company Number: US-JNJFOC-20120408077

PATIENT

DRUGS (3)
  1. DOXORUBICIN HCL [Suspect]
     Indication: FOETAL EXPOSURE DURING PREGNANCY
     Route: 064
  2. FLUOROURACIL [Suspect]
     Indication: FOETAL EXPOSURE DURING PREGNANCY
     Route: 065
  3. CYCLOPHOSPHAMIDE [Suspect]
     Indication: FOETAL EXPOSURE DURING PREGNANCY
     Route: 065

REACTIONS (7)
  - MULTIPLE ALLERGIES [None]
  - SPEECH DISORDER DEVELOPMENTAL [None]
  - ASTHMA [None]
  - OXYGEN SUPPLEMENTATION [None]
  - HYPOGLYCAEMIA [None]
  - ECZEMA [None]
  - JAUNDICE [None]
